FAERS Safety Report 23969267 (Version 1)
Quarter: 2024Q2

REPORT INFORMATION
  Report Type: Spontaneous
  Country: US (occurrence: US)
  Receive Date: 20240612
  Receipt Date: 20240612
  Transmission Date: 20240716
  Serious: Yes (Other)
  Sender: FDA-Public Use
  Company Number: US-IDORSIA-008053-2024-US

PATIENT
  Age: 52 Year
  Sex: Female

DRUGS (4)
  1. QUVIVIQ [Suspect]
     Active Substance: DARIDOREXANT
     Indication: Insomnia
     Dosage: 25 MG, QD
     Route: 048
     Dates: start: 20240601, end: 20240603
  2. NAPROXEN [Concomitant]
     Active Substance: NAPROXEN
  3. TRAMADOL [Concomitant]
     Active Substance: TRAMADOL\TRAMADOL HYDROCHLORIDE
  4. HYDROXYCHLOROQUINE [Concomitant]
     Active Substance: HYDROXYCHLOROQUINE

REACTIONS (7)
  - Loss of consciousness [Recovered/Resolved]
  - Feeling abnormal [Not Recovered/Not Resolved]
  - Gait inability [Recovered/Resolved]
  - Loss of personal independence in daily activities [Recovered/Resolved]
  - Vertigo [Not Recovered/Not Resolved]
  - Fatigue [Recovered/Resolved]
  - Drug ineffective [Not Recovered/Not Resolved]

NARRATIVE: CASE EVENT DATE: 20240602
